FAERS Safety Report 6103705-X (Version None)
Quarter: 2009Q1

REPORT INFORMATION
  Report Type: 
  Country: None (occurrence: None)
  Receive Date: 20090305
  Receipt Date: 20090225
  Transmission Date: 20090719
  Serious: Yes (Hospitalization)
  Sender: FDA-Public Use
  Company Number: JP-EISAI MEDIAL RESEARCH-E3810-02502-SPO-JP

PATIENT
  Sex: Female
  Weight: 43 kg

DRUGS (10)
  1. PARIET (RABEPRAZOLE) [Suspect]
     Indication: GASTRIC ULCER
     Route: 048
     Dates: start: 20081114, end: 20081225
  2. MAALOX [Concomitant]
     Indication: GASTRIC ULCER
     Route: 048
     Dates: start: 20081114
  3. NOVORAPID [Concomitant]
     Indication: DIABETES MELLITUS
     Route: 058
     Dates: start: 20081114
  4. STARSIS [Concomitant]
     Indication: DIABETES MELLITUS
     Route: 048
     Dates: start: 20081114, end: 20081219
  5. VOGLIBOSE [Concomitant]
     Indication: DIABETES MELLITUS
     Route: 048
     Dates: start: 20081114
  6. CRAVIT [Concomitant]
     Route: 048
     Dates: start: 20081125, end: 20081127
  7. BERIZYM [Concomitant]
     Route: 048
     Dates: start: 20081125, end: 20081127
  8. LAC B [Concomitant]
     Route: 048
     Dates: start: 20081125, end: 20081127
  9. LOPEMIN [Concomitant]
     Route: 048
     Dates: start: 20081125
  10. STARSIS [Concomitant]
     Route: 048
     Dates: end: 20081225

REACTIONS (1)
  - COLITIS [None]
